FAERS Safety Report 4527990-0 (Version None)
Quarter: 2004Q4

REPORT INFORMATION
  Report Type: 
  Country: None (occurrence: None)
  Receive Date: 20041123
  Receipt Date: 20040414
  Transmission Date: 20050328
  Serious: Yes (Hospitalization)
  Sender: FDA-Public Use
  Company Number: 2004010132

PATIENT
  Sex: Female

DRUGS (6)
  1. LIPITOR [Suspect]
     Indication: CORONARY ARTERY DISEASE
     Dosage: 80 MG (DAILY), ORAL
     Route: 048
  2. ASPIRIN [Concomitant]
  3. TRIOBE (CYANOCOBALAMIN, FOLIC ACID, PYRIDOXINE) [Concomitant]
  4. ALENDRONATE SODIUM [Concomitant]
  5. SOTALOL HCL [Concomitant]
  6. CLOPIDOGREL BISULFATE [Concomitant]

REACTIONS (1)
  - RHABDOMYOLYSIS [None]
